FAERS Safety Report 18128537 (Version 1)
Quarter: 2020Q3

REPORT INFORMATION
  Report Type: Spontaneous
  Country: US (occurrence: US)
  Receive Date: 20200809
  Receipt Date: 20200809
  Transmission Date: 20201103
  Serious: Yes (Other)
  Sender: FDA-Public Use
  Company Number: None

PATIENT
  Age: 50 Year
  Sex: Male

DRUGS (1)
  1. NEXT HAND SANITIZER [Suspect]
     Active Substance: ALCOHOL
     Indication: COVID-19 PROPHYLAXIS
     Dosage: ?          OTHER STRENGTH:8 FLUID OUNCES;QUANTITY:1 OUNCE(S);?
     Route: 061
     Dates: start: 20200809, end: 20200809

REACTIONS (3)
  - Nausea [None]
  - Application site pain [None]
  - Product odour abnormal [None]

NARRATIVE: CASE EVENT DATE: 20200809
